FAERS Safety Report 6411419-1 (Version None)
Quarter: 2009Q4

REPORT INFORMATION
  Report Type: 
  Country: None (occurrence: None)
  Receive Date: 20091023
  Receipt Date: 20091015
  Transmission Date: 20100525
  Serious: Yes (Disabling)
  Sender: FDA-Public Use
  Company Number: US-ELI_LILLY_AND_COMPANY-US200910003865

PATIENT
  Sex: Male
  Weight: 175 kg

DRUGS (17)
  1. BYETTA [Suspect]
     Indication: TYPE 2 DIABETES MELLITUS
     Dosage: 5 UG, 2/D
     Route: 058
     Dates: start: 20050101, end: 20050101
  2. BYETTA [Suspect]
     Dosage: 10 UG, 2/D
     Route: 058
     Dates: start: 20050101, end: 20090101
  3. ACTOPLUS MET [Concomitant]
     Indication: TYPE 2 DIABETES MELLITUS
     Route: 048
     Dates: end: 20090401
  4. JANUVIA [Concomitant]
     Indication: TYPE 2 DIABETES MELLITUS
     Route: 048
  5. SIMVASTATIN [Concomitant]
     Dosage: 40 MG, DAILY (1/D)
     Route: 048
  6. LISINOPRIL [Concomitant]
     Dosage: 40 MG, DAILY (1/D)
     Route: 048
  7. CARVEDILOL [Concomitant]
     Dosage: 25 MG, 4/D
     Route: 048
  8. DILTIAZEM [Concomitant]
     Dosage: 240 MG, DAILY (1/D)
     Route: 048
  9. POTASSIUM CHLORIDE [Concomitant]
     Dosage: 20 MEQ, 3/D
  10. IRON [Concomitant]
     Dosage: 65 MG, DAILY (1/D)
     Route: 048
  11. PRILOSEC [Concomitant]
     Dosage: 20 MG, DAILY (1/D)
     Route: 048
  12. FISH OIL [Concomitant]
     Dosage: 1200 MG, 2/D
     Route: 048
  13. ACIDOPHILUS [Concomitant]
     Dosage: 13.3 MG, DAILY (1/D)
     Route: 048
  14. GLUCOSAMINE /CHOND /03040701/ [Concomitant]
     Dosage: UNK, 2/D
     Route: 048
  15. LORATADINE [Concomitant]
     Dosage: 10 MG, DAILY (1/D)
     Route: 048
  16. OXYCODONE HCL AND ACETAMINOPHEN [Concomitant]
     Dosage: UNK, 3/D
     Route: 048
  17. MULTIVITAMIN                       /00831701/ [Concomitant]
     Dosage: UNK, DAILY (1/D)
     Route: 048

REACTIONS (9)
  - BLOOD GLUCOSE INCREASED [None]
  - BLOOD TESTOSTERONE DECREASED [None]
  - BODY HEIGHT DECREASED [None]
  - BRONCHITIS [None]
  - OSTEOPENIA [None]
  - OSTEOPOROSIS [None]
  - PULMONARY HYPERTENSION [None]
  - SLEEP APNOEA SYNDROME [None]
  - SPINAL COMPRESSION FRACTURE [None]
